FAERS Safety Report 4527120-5 (Version None)
Quarter: 2004Q4

REPORT INFORMATION
  Report Type: 
  Country: None (occurrence: None)
  Receive Date: 20041201
  Receipt Date: 20041011
  Transmission Date: 20050328
  Serious: Yes (Hospitalization)
  Sender: FDA-Public Use
  Company Number: US095120

PATIENT
  Age: 57 Year
  Sex: Female
  Weight: 88.5 kg

DRUGS (5)
  1. ENBREL [Suspect]
     Indication: RHEUMATOID ARTHRITIS
     Dosage: 25 MG, 2 IN 1 WEEKS
     Dates: start: 20010601, end: 20040609
  2. MYCOPHENOLATE MOFETIL [Concomitant]
  3. VALDECOXIB [Concomitant]
  4. VENLAFAXINE HCL [Concomitant]
  5. ALENDRONATE SODIUM [Concomitant]

REACTIONS (1)
  - OSTEOMYELITIS [None]
